FAERS Safety Report 5086150-8 (Version None)
Quarter: 2006Q3

REPORT INFORMATION
  Report Type: 
  Country: None (occurrence: None)
  Receive Date: 20060818
  Receipt Date: 20060807
  Transmission Date: 20061208
  Serious: Yes (Hospitalization)
  Sender: FDA-Public Use
  Company Number: 2006093380

PATIENT
  Age: 83 Year
  Sex: Male

DRUGS (6)
  1. FLUCONAZOLE [Suspect]
     Indication: STOMATITIS
     Dosage: 50 MG, 1 IN 1 D ORAL
     Route: 048
     Dates: start: 20060101
  2. AMLODIPINE [Concomitant]
  3. PERMIXON (SERENOA REPENS) [Concomitant]
  4. TRIVASTAL (PIRIBEDIL) [Concomitant]
  5. PIASCLEDINE            (PERSEAE OLEUM, SOYA OIL) [Concomitant]
  6. ALL OTHER THERAPEUTIC PRODUCTS [Concomitant]

REACTIONS (3)
  - LOSS OF CONSCIOUSNESS [None]
  - MALAISE [None]
  - VOMITING [None]
